FAERS Safety Report 7950380-5 (Version None)
Quarter: 2011Q4

REPORT INFORMATION
  Report Type: 
  Country: None (occurrence: None)
  Receive Date: 20111130
  Receipt Date: 20111116
  Transmission Date: 20120403
  Serious: Yes (Other)
  Sender: FDA-Public Use
  Company Number: US-ENDO PHARMACEUTICALS INC.-OPER20110307

PATIENT
  Age: 20 Year
  Sex: Female

DRUGS (1)
  1. OPANA ER [Suspect]
     Indication: PAIN
     Dosage: 20 MG
     Route: 048

REACTIONS (3)
  - INTENTIONAL DRUG MISUSE [None]
  - DRUG DIVERSION [None]
  - WRONG TECHNIQUE IN DRUG USAGE PROCESS [None]
